FAERS Safety Report 10049019 (Version 1)
Quarter: 2014Q1

REPORT INFORMATION
  Report Type: Spontaneous
  Country: GB (occurrence: GB)
  Receive Date: 20140331
  Receipt Date: 20140331
  Transmission Date: 20141002
  Serious: Yes (Other)
  Sender: FDA-Public Use
  Company Number: GB-PFIZER INC-2014089362

PATIENT
  Age: 45 Year
  Sex: Male

DRUGS (2)
  1. ALFUZOSIN [Suspect]
     Indication: URINARY TRACT OBSTRUCTION
     Dosage: 10 MG, 1X/DAY
     Route: 048
     Dates: start: 20140130, end: 20140228
  2. SALBUTAMOL [Suspect]
     Dosage: 200 UG, AS NEEDED
     Route: 055

REACTIONS (4)
  - Bradycardia [Recovered/Resolved]
  - Dyspnoea [Recovered/Resolved]
  - Chest pain [Recovered/Resolved]
  - Palpitations [Recovered/Resolved]
